FAERS Safety Report 9105212 (Version 1)
Quarter: 2013Q1

REPORT INFORMATION
  Report Type: Spontaneous
  Country: US (occurrence: US)
  Receive Date: 20130220
  Receipt Date: 20130220
  Transmission Date: 20140127
  Serious: Yes (Death)
  Sender: FDA-Public Use
  Company Number: US-GLAXOSMITHKLINE-A0977062A

PATIENT
  Age: 82 Year
  Sex: Female

DRUGS (13)
  1. TYKERB [Suspect]
     Indication: PRODUCT USED FOR UNKNOWN INDICATION
     Dosage: 750MG PER DAY
     Route: 048
     Dates: start: 20120503
  2. MIRALAX [Concomitant]
  3. DILANTIN [Concomitant]
  4. FEMARA [Concomitant]
  5. FLONASE [Concomitant]
  6. NEXIUM [Concomitant]
  7. PROCRIT [Concomitant]
  8. VITAMIN D [Concomitant]
  9. ATIVAN [Concomitant]
  10. CARVEDILOL [Concomitant]
  11. XARELTO [Concomitant]
  12. ZOMETA [Concomitant]
  13. XGEVA [Concomitant]

REACTIONS (3)
  - Death [Fatal]
  - Nausea [Unknown]
  - Tremor [Unknown]
